FAERS Safety Report 15930256 (Version 1)
Quarter: 2019Q1

REPORT INFORMATION
  Report Type: Spontaneous
  Country: US (occurrence: US)
  Receive Date: 20190115
  Receipt Date: 20190115
  Transmission Date: 20190417
  Serious: Yes (Death)
  Sender: FDA-Public Use
  Company Number: None

PATIENT
  Age: 8 Year
  Sex: Female
  Weight: 22.6 kg

DRUGS (6)
  1. MERCAPTOPURINE. [Concomitant]
     Active Substance: MERCAPTOPURINE
     Dates: end: 20181220
  2. METHOTREXATE. [Concomitant]
     Active Substance: METHOTREXATE
     Dates: end: 20181220
  3. ONCASPAR [Concomitant]
     Active Substance: PEGASPARGASE
     Dates: end: 20181220
  4. CYTARABINE. [Concomitant]
     Active Substance: CYTARABINE
     Dates: end: 20181216
  5. CYCLOPHOSPHAMIDE. [Suspect]
     Active Substance: CYCLOPHOSPHAMIDE
     Dates: end: 20181206
  6. VINCRISTINE SULFATE. [Concomitant]
     Active Substance: VINCRISTINE SULFATE
     Dates: end: 20181220

REACTIONS (18)
  - Febrile neutropenia [None]
  - Pneumonia [None]
  - Human rhinovirus test positive [None]
  - Atelectasis [None]
  - Haemorrhage intracranial [None]
  - Brain death [None]
  - Multiple organ dysfunction syndrome [None]
  - Respiratory failure [None]
  - Cerebral infarction [None]
  - Enterovirus test positive [None]
  - Hypotension [None]
  - Hypoxia [None]
  - Disseminated intravascular coagulation [None]
  - Pulmonary oedema [None]
  - Blood creatinine increased [None]
  - Acute kidney injury [None]
  - Bradycardia [None]
  - Human metapneumovirus test positive [None]

NARRATIVE: CASE EVENT DATE: 20181228
